FAERS Safety Report 5057646-X (Version None)
Quarter: 2006Q3

REPORT INFORMATION
  Report Type: 
  Country: None (occurrence: None)
  Receive Date: 20060721
  Receipt Date: 20060106
  Transmission Date: 20061208
  Serious: Yes (Other)
  Sender: FDA-Public Use
  Company Number: US-GLAXOSMITHKLINE-A0588183A

PATIENT
  Age: 59 Year
  Sex: Male

DRUGS (3)
  1. AVANDIA [Suspect]
     Dosage: 8MG PER DAY
     Route: 048
     Dates: end: 20050601
  2. GLUCOVANCE [Concomitant]
  3. NORVASC [Concomitant]

REACTIONS (2)
  - MACULAR OEDEMA [None]
  - SWELLING [None]
